FAERS Safety Report 7945096-5 (Version None)
Quarter: 2011Q4

REPORT INFORMATION
  Report Type: 
  Country: None (occurrence: None)
  Receive Date: 20111129
  Receipt Date: 20111129
  Transmission Date: 20120403
  Serious: Yes (Other)
  Sender: FDA-Public Use
  Company Number: None

PATIENT
  Age: 25 Year
  Sex: Female
  Weight: 61.234 kg

DRUGS (1)
  1. MIRENA [Suspect]
     Route: 015
     Dates: start: 20110528, end: 20111103

REACTIONS (2)
  - DEVICE DISLOCATION [None]
  - UTERINE PERFORATION [None]
